FAERS Safety Report 25526321 (Version 2)
Quarter: 2025Q3

REPORT INFORMATION
  Report Type: Report from Study
  Country: MX (occurrence: MX)
  Receive Date: 20250707
  Receipt Date: 20250818
  Transmission Date: 20251020
  Serious: Yes (Other)
  Sender: NOVARTIS
  Company Number: MX-002147023-NVSC2025MX107049

PATIENT
  Age: 71 Year
  Sex: Female
  Weight: 57 kg

DRUGS (2)
  1. FEMARA [Suspect]
     Active Substance: LETROZOLE
     Indication: Breast cancer
     Dosage: 1 DOSAGE FORM, QD
     Route: 048
     Dates: start: 20241106, end: 202506
  2. FEMARA [Suspect]
     Active Substance: LETROZOLE
     Indication: Neoplasm malignant

REACTIONS (3)
  - Lymphadenopathy [Recovering/Resolving]
  - Somnolence [Not Recovered/Not Resolved]
  - Off label use [Unknown]

NARRATIVE: CASE EVENT DATE: 20250101
